FAERS Safety Report 17057580 (Version 1)
Quarter: 2019Q4

REPORT INFORMATION
  Report Type: Spontaneous
  Country: DE (occurrence: DE)
  Receive Date: 20191121
  Receipt Date: 20191121
  Transmission Date: 20200122
  Serious: Yes (Other)
  Sender: FDA-Public Use
  Company Number: DE-ALK-ABELLO A/S-2019AA003852

PATIENT

DRUGS (5)
  1. VITAMIN D NOS [Concomitant]
     Active Substance: VITAMIN D NOS
     Dosage: 20.000 I.E. PER WEEK
  2. SALBUTAMOL [Concomitant]
     Active Substance: ALBUTEROL
  3. VIANI [Concomitant]
     Active Substance: FLUTICASONE PROPIONATE\SALMETEROL XINAFOATE
     Dosage: 1 PUFF IN THE MORNING
     Route: 055
     Dates: end: 201911
  4. ACARIZAX [Suspect]
     Active Substance: DERMATOPHAGOIDES FARINAE\DERMATOPHAGOIDES PTERONYSSINUS
     Indication: MITE ALLERGY
     Dosage: 12 SQ-HDM
     Route: 060
     Dates: start: 20160829, end: 201903
  5. TELFAST                            /01314201/ [Concomitant]
     Dosage: 1/2 TABLET PER DAY
     Route: 048

REACTIONS (6)
  - Nasal congestion [Unknown]
  - Paraesthesia oral [Recovered/Resolved]
  - Abdominal pain [Unknown]
  - Colitis ulcerative [Unknown]
  - Diarrhoea [Unknown]
  - Infection [Unknown]

NARRATIVE: CASE EVENT DATE: 201812
